FAERS Safety Report 8938424 (Version 1)
Quarter: 2012Q4

REPORT INFORMATION
  Report Type: 
  Country: TR (occurrence: TR)
  Receive Date: 20121203
  Receipt Date: 20121203
  Transmission Date: 20130627
  Serious: Yes (Other)
  Sender: FDA-Public Use
  Company Number: PHHY2012TR109837

PATIENT
  Age: 48 Year
  Sex: Female

DRUGS (2)
  1. CAPECITABINE [Suspect]
     Indication: CHEMOTHERAPY
  2. ZOLEDRONATE [Suspect]
     Indication: CHEMOTHERAPY

REACTIONS (2)
  - Hypertriglyceridaemia [Recovered/Resolved]
  - Body mass index increased [Unknown]
